FAERS Safety Report 9324381 (Version 1)
Quarter: 2013Q2

REPORT INFORMATION
  Report Type: Spontaneous
  Country: CH (occurrence: CH)
  Receive Date: 20130603
  Receipt Date: 20130603
  Transmission Date: 20140414
  Serious: Yes (Disabling)
  Sender: FDA-Public Use
  Company Number: CH-ELI_LILLY_AND_COMPANY-CH201305007089

PATIENT
  Age: 20 Year
  Sex: Male

DRUGS (5)
  1. ZYPREXA [Suspect]
     Dosage: 3.75 MG, BID
     Route: 048
  2. ORFIRIL [Concomitant]
     Dosage: 850 MG, IN THE MORNING
     Route: 048
  3. ORFIRIL [Concomitant]
     Dosage: 650 MG, IN THE EVENING
  4. LAMOTRIGIN [Concomitant]
     Dosage: 75 MG, BID
     Route: 048
  5. VALPROIC ACID [Concomitant]
     Dosage: 650 MG, BID

REACTIONS (2)
  - Convulsion [Recovered/Resolved]
  - Muscle contractions involuntary [Recovered/Resolved]
